FAERS Safety Report 19943380 (Version 2)
Quarter: 2021Q4

REPORT INFORMATION
  Report Type: Spontaneous
  Country: JP (occurrence: JP)
  Receive Date: 20211011
  Receipt Date: 20211118
  Transmission Date: 20220303
  Serious: Yes (Death, Life-Threatening, Hospitalization)
  Sender: FDA-Public Use
  Company Number: JP-JNJFOC-A-CH2019-185352

PATIENT
  Age: 74 Year
  Sex: Female

DRUGS (19)
  1. OPSUMIT [Suspect]
     Active Substance: MACITENTAN
     Indication: Pulmonary arterial hypertension
     Dosage: 10 MG, QD IN THE MORNING
     Route: 048
     Dates: start: 20181213, end: 20190118
  2. UPTRAVI [Concomitant]
     Active Substance: SELEXIPAG
     Indication: Pulmonary arterial hypertension
     Route: 048
     Dates: start: 20181213, end: 20190118
  3. ADCIRCA [Concomitant]
     Active Substance: TADALAFIL
     Indication: Pulmonary arterial hypertension
     Route: 048
     Dates: start: 20181213, end: 20190118
  4. AZOSEMIDE [Concomitant]
     Active Substance: AZOSEMIDE
     Indication: Cardiac failure congestive
     Route: 048
     Dates: start: 20181213, end: 20181220
  5. AZOSEMIDE [Concomitant]
     Active Substance: AZOSEMIDE
     Indication: Cardiac failure congestive
     Route: 048
     Dates: start: 20181221, end: 20190118
  6. SPIRONOLACTONE [Concomitant]
     Active Substance: SPIRONOLACTONE
     Indication: Cardiac failure congestive
     Route: 048
     Dates: start: 20181213, end: 20181220
  7. SPIRONOLACTONE [Concomitant]
     Active Substance: SPIRONOLACTONE
     Route: 048
     Dates: start: 20181221
  8. POTASSIUM ASPARTATE [Concomitant]
     Active Substance: POTASSIUM ASPARTATE
     Indication: Hypokalaemia
     Route: 048
     Dates: start: 20181213, end: 20190118
  9. LANSOPRAZOLE [Concomitant]
     Active Substance: LANSOPRAZOLE
     Indication: Gastrooesophageal reflux disease
     Route: 048
     Dates: start: 20181213, end: 20181220
  10. LANSOPRAZOLE [Concomitant]
     Active Substance: LANSOPRAZOLE
     Route: 048
     Dates: start: 20181221, end: 20190118
  11. TRANEXAMIC ACID [Concomitant]
     Active Substance: TRANEXAMIC ACID
     Indication: Haemorrhagic diathesis
     Route: 048
     Dates: start: 20181213, end: 20181220
  12. TRANSAMIN [Concomitant]
     Active Substance: TRANEXAMIC ACID
     Indication: Haemorrhagic diathesis
     Route: 048
     Dates: start: 20181220, end: 20190118
  13. HERBALS [Concomitant]
     Active Substance: HERBALS
     Indication: Headache
     Route: 048
     Dates: start: 20181213, end: 20190118
  14. LATANOPROST [Concomitant]
     Active Substance: LATANOPROST
     Indication: Glaucoma
     Route: 047
     Dates: start: 20181213, end: 20190118
  15. SODIUM HYALURONATE [Concomitant]
     Active Substance: HYALURONATE SODIUM
     Indication: Dry eye
     Dosage: DOSE UNKNOWN, 5-6TIMES/DAY
     Route: 047
     Dates: start: 20181213, end: 20190118
  16. AZOPT [Concomitant]
     Active Substance: BRINZOLAMIDE
     Indication: Glaucoma
     Route: 047
     Dates: start: 20181213, end: 20190118
  17. OXYGEN [Concomitant]
     Active Substance: OXYGEN
  18. AMPICILLIN SODIUM\SULBACTAM SODIUM [Concomitant]
     Active Substance: AMPICILLIN SODIUM\SULBACTAM SODIUM
     Indication: Pneumonia
     Route: 042
     Dates: start: 20190119, end: 20190121
  19. SODIUM CHLORIDE [Concomitant]
     Active Substance: SODIUM CHLORIDE
     Indication: Pneumonia
     Route: 042
     Dates: start: 20190119, end: 20190121

REACTIONS (16)
  - Pneumonia [Fatal]
  - Dehydration [Not Recovered/Not Resolved]
  - Depressed level of consciousness [Not Recovered/Not Resolved]
  - General physical health deterioration [Fatal]
  - Cough [Fatal]
  - Headache [Fatal]
  - Bradycardia [Fatal]
  - Oxygen saturation decreased [Fatal]
  - Respiratory depression [Fatal]
  - Pyrexia [Fatal]
  - Upper gastrointestinal haemorrhage [Not Recovered/Not Resolved]
  - Myalgia [Recovering/Resolving]
  - Insomnia [Recovering/Resolving]
  - Nasopharyngitis [Not Recovered/Not Resolved]
  - Decreased appetite [Not Recovered/Not Resolved]
  - Depressed level of consciousness [Recovering/Resolving]

NARRATIVE: CASE EVENT DATE: 20181220
